FAERS Safety Report 6865977-3 (Version None)
Quarter: 2010Q3

REPORT INFORMATION
  Report Type: 
  Country: None (occurrence: None)
  Receive Date: 20100722
  Receipt Date: 20100709
  Transmission Date: 20110219
  Serious: Yes (Hospitalization)
  Sender: FDA-Public Use
  Company Number: PHHY2010DE27480

PATIENT
  Sex: Male
  Weight: 110 kg

DRUGS (8)
  1. ALISKIREN ALI+ [Suspect]
     Indication: HYPERTENSION
     Dosage: 150 MG/D
     Route: 048
     Dates: start: 20081125, end: 20090310
  2. ALISKIREN ALI+ [Suspect]
     Dosage: UNK
     Dates: start: 20081125
  3. COTAREG [Suspect]
     Indication: HYPERTENSION
     Dosage: 1 DF/D
     Route: 048
     Dates: start: 20060922
  4. METFORMIN [Concomitant]
     Indication: TYPE 2 DIABETES MELLITUS
     Dosage: 500 MG/D
     Route: 048
     Dates: start: 20061128
  5. BETA BLOCKING AGENTS [Concomitant]
  6. ANTICOAGULANTS [Concomitant]
     Dosage: 100 MG, UNK
     Route: 048
     Dates: start: 20080617, end: 20080923
  7. METOHEXAL [Concomitant]
     Dosage: UNK
     Dates: start: 20030402, end: 20080410
  8. METOPROLOL [Concomitant]
     Dosage: 100 MG, UNK
     Dates: start: 20080617, end: 20080923

REACTIONS (1)
  - PULMONARY EMBOLISM [None]
